FAERS Safety Report 9182658 (Version 1)
Quarter: 2012Q4

REPORT INFORMATION
  Report Type: 
  Country: US (occurrence: US)
  Receive Date: 20121031
  Receipt Date: 20121031
  Transmission Date: 20130627
  Serious: Yes (Other)
  Sender: FDA-Public Use
  Company Number: US-UCBSA-069805

PATIENT
  Age: 51 Year
  Sex: Female

DRUGS (2)
  1. VIMPAT [Suspect]
     Indication: CONVULSION
     Dosage: DOSE STRENGH : 100 MG
  2. LAMICTAL [Suspect]
     Indication: CONVULSION

REACTIONS (5)
  - Convulsion [Unknown]
  - Accident [Unknown]
  - Local swelling [Recovering/Resolving]
  - Musculoskeletal pain [Recovering/Resolving]
  - Stress [Unknown]
